FAERS Safety Report 23427693 (Version 6)
Quarter: 2025Q2

REPORT INFORMATION
  Report Type: Spontaneous
  Country: US (occurrence: US)
  Receive Date: 20240122
  Receipt Date: 20250408
  Transmission Date: 20250716
  Serious: Yes (Hospitalization)
  Sender: SANOFI AVENTIS
  Company Number: US-SA-2023SA391721

PATIENT
  Age: 48 Year
  Sex: Female

DRUGS (5)
  1. DUPIXENT [Suspect]
     Active Substance: DUPILUMAB
     Indication: Dermatitis atopic
     Dosage: 300 MG, QOW
     Route: 058
     Dates: start: 202311, end: 202312
  2. DUPIXENT [Suspect]
     Active Substance: DUPILUMAB
     Route: 065
     Dates: start: 202401, end: 202401
  3. DUPIXENT [Suspect]
     Active Substance: DUPILUMAB
     Dosage: 300 MG, QOW
     Route: 065
     Dates: start: 2024
  4. XARELTO [Concomitant]
     Active Substance: RIVAROXABAN
  5. ELIQUIS [Concomitant]
     Active Substance: APIXABAN

REACTIONS (9)
  - Illness [Unknown]
  - COVID-19 [Unknown]
  - Contusion [Unknown]
  - Rash pruritic [Unknown]
  - Hypertension [Unknown]
  - Eczema [Unknown]
  - Surgery [Unknown]
  - Rash [Unknown]
  - Injection site bruising [Unknown]

NARRATIVE: CASE EVENT DATE: 20231201
